FAERS Safety Report 7455884-X (Version None)
Quarter: 2011Q2

REPORT INFORMATION
  Report Type: 
  Country: None (occurrence: None)
  Receive Date: 20110503
  Receipt Date: 20110427
  Transmission Date: 20111010
  Serious: Yes (Other)
  Sender: FDA-Public Use
  Company Number: A0925219A

PATIENT
  Age: 27 Year
  Sex: Female

DRUGS (2)
  1. LEXIVA [Suspect]
     Indication: ANTIVIRAL TREATMENT
     Dosage: 2800MGD PER DAY
     Route: 048
  2. COMBIVIR [Suspect]
     Indication: ANTIVIRAL TREATMENT
     Dosage: 2TAB PER DAY
     Route: 048

REACTIONS (2)
  - ABORTION SPONTANEOUS [None]
  - DRUG EXPOSURE DURING PREGNANCY [None]
